FAERS Safety Report 25143310 (Version 1)
Quarter: 2025Q2

REPORT INFORMATION
  Report Type: Spontaneous
  Country: JP (occurrence: JP)
  Receive Date: 20250401
  Receipt Date: 20250401
  Transmission Date: 20250717
  Serious: Yes (Death)
  Sender: ALEXION PHARMACEUTICALS
  Company Number: JP-ASTRAZENECA-250029542_013820_P_1

PATIENT
  Age: 77 Year

DRUGS (1)
  1. CALQUENCE [Suspect]
     Active Substance: ACALABRUTINIB
     Indication: Chronic lymphocytic leukaemia
     Dosage: 1 DOSAGE FORM, QD (100 ML/KG)

REACTIONS (2)
  - Infection [Fatal]
  - Pneumonia [Fatal]
